FAERS Safety Report 7378613-7 (Version None)
Quarter: 2011Q1

REPORT INFORMATION
  Report Type: 
  Country: None (occurrence: None)
  Receive Date: 20110328
  Receipt Date: 20110318
  Transmission Date: 20110831
  Serious: Yes (Other)
  Sender: FDA-Public Use
  Company Number: US-ASTRAZENECA-2011SE15777

PATIENT
  Sex: Male

DRUGS (1)
  1. ATACAND HCT [Suspect]
     Dosage: 32 + 12.5 MG QD
     Route: 048

REACTIONS (1)
  - PROSTATE CANCER [None]
